FAERS Safety Report 17181286 (Version 2)
Quarter: 2020Q1

REPORT INFORMATION
  Report Type: Spontaneous
  Country: US (occurrence: US)
  Receive Date: 20191220
  Receipt Date: 20200207
  Transmission Date: 20200409
  Serious: Yes (Death, Other)
  Sender: FDA-Public Use
  Company Number: US-BTG-201900260

PATIENT
  Age: 59 Year
  Sex: Male

DRUGS (4)
  1. CROFAB [Suspect]
     Active Substance: CROTALIDAE POLYVALENT IMMUNE FAB (OVINE)
     Indication: SNAKE BITE
     Dosage: 6 VIALS
     Route: 065
  2. SODIUM BICARBONATE. [Concomitant]
     Active Substance: SODIUM BICARBONATE
     Indication: PRODUCT USED FOR UNKNOWN INDICATION
     Dosage: MULTIPLE AMPULES
     Route: 065
  3. CROFAB [Suspect]
     Active Substance: CROTALIDAE POLYVALENT IMMUNE FAB (OVINE)
     Indication: SNAKE BITE
     Dosage: ANOTHER 6 VIALS OF ANTIVENOM
     Route: 065
  4. EPINEPHRINE. [Concomitant]
     Active Substance: EPINEPHRINE
     Indication: PRODUCT USED FOR UNKNOWN INDICATION
     Route: 042

REACTIONS (7)
  - Electrocardiogram QRS complex shortened [Unknown]
  - Death [Fatal]
  - Brain injury [Unknown]
  - Electrocardiogram ST segment depression [Unknown]
  - Bradycardia [Unknown]
  - Hypotension [Unknown]
  - Haemodynamic instability [Unknown]
